FAERS Safety Report 24274888 (Version 1)
Quarter: 2024Q3

REPORT INFORMATION
  Report Type: Spontaneous
  Country: DK (occurrence: DK)
  Receive Date: 20240902
  Receipt Date: 20240902
  Transmission Date: 20241017
  Serious: Yes (Death, Other)
  Sender: TEVA
  Company Number: None

PATIENT
  Age: 49 Year
  Sex: Female
  Weight: 71 kg

DRUGS (9)
  1. FLUCONAZOLE [Suspect]
     Active Substance: FLUCONAZOLE
     Indication: Product used for unknown indication
     Dosage: DOSAGE: UNKNOWN. STRENGTH: UNKNOWN
     Route: 065
  2. Morfin [Concomitant]
     Indication: Pain
     Route: 065
     Dates: start: 20230104
  3. ONDANSETRON [Suspect]
     Active Substance: ONDANSETRON
     Indication: Nausea
     Dosage: MAXIMUM 2 TIMES DAILY, ONDANSETRON ^BLUEFISH^
     Route: 048
     Dates: start: 20221012
  4. ZOPICLONE [Concomitant]
     Active Substance: ZOPICLONE
     Indication: Insomnia
     Route: 065
     Dates: start: 20231130
  5. FUROSEMIDE [Concomitant]
     Active Substance: FUROSEMIDE
     Indication: Diuretic therapy
     Route: 065
     Dates: start: 20230822
  6. ACETAMINOPHEN [Concomitant]
     Active Substance: ACETAMINOPHEN
     Indication: Pain
     Route: 065
     Dates: start: 20180718
  7. CARVEDILOL [Concomitant]
     Active Substance: CARVEDILOL
     Indication: Varices oesophageal
     Route: 065
     Dates: start: 20230522
  8. METOCLOPRAMIDE [Suspect]
     Active Substance: METOCLOPRAMIDE
     Indication: Nausea
     Route: 048
     Dates: start: 20230403
  9. IMODIUM [Suspect]
     Active Substance: LOPERAMIDE HYDROCHLORIDE
     Indication: Diarrhoea
     Dosage: MAXIMUM 8 TIMES DAILY
     Route: 048
     Dates: start: 20230109

REACTIONS (1)
  - Cardiac arrest [Fatal]

NARRATIVE: CASE EVENT DATE: 20240129
